FAERS Safety Report 17890603 (Version 4)
Quarter: 2020Q3

REPORT INFORMATION
  Report Type: Spontaneous
  Country: AR (occurrence: AR)
  Receive Date: 20200612
  Receipt Date: 20200710
  Transmission Date: 20201103
  Serious: Yes (Hospitalization, Other)
  Sender: FDA-Public Use
  Company Number: AR-EMD SERONO-9167106

PATIENT
  Age: 23 Year
  Sex: Female

DRUGS (1)
  1. MAVENCLAD [Suspect]
     Active Substance: CLADRIBINE
     Indication: RELAPSING-REMITTING MULTIPLE SCLEROSIS
     Dosage: FIRST YEAR FIRST WEEK THERAPY
     Dates: start: 20200519, end: 20200523

REACTIONS (5)
  - Muscular weakness [Recovering/Resolving]
  - Immune reconstitution inflammatory syndrome [Recovering/Resolving]
  - Visual impairment [Recovering/Resolving]
  - Central nervous system lesion [Not Recovered/Not Resolved]
  - Aphasia [Recovering/Resolving]

NARRATIVE: CASE EVENT DATE: 20200524
